FAERS Safety Report 14943035 (Version 4)
Quarter: 2019Q2

REPORT INFORMATION
  Report Type: Spontaneous
  Country: JP (occurrence: JP)
  Receive Date: 20180528
  Receipt Date: 20190607
  Transmission Date: 20190711
  Serious: Yes (Death, Other)
  Sender: FDA-Public Use
  Company Number: JP-ACTELION-A-CH2018-172047

PATIENT
  Age: 66 Year
  Sex: Female
  Weight: 34.5 kg

DRUGS (18)
  1. FUROSEMIDE. [Concomitant]
     Active Substance: FUROSEMIDE
     Dosage: 15 MG, QD
     Dates: start: 20171216, end: 20180104
  2. FUROSEMIDE. [Concomitant]
     Active Substance: FUROSEMIDE
     Dosage: 30 MG, QD
     Dates: start: 20180121, end: 20180124
  3. FUROSEMIDE. [Concomitant]
     Active Substance: FUROSEMIDE
     Dosage: 10 MG, QD
     Dates: start: 20180315, end: 20180429
  4. DIGOXIN. [Concomitant]
     Active Substance: DIGOXIN
     Dosage: 62.5 MCG, QD
     Dates: end: 20180301
  5. DIGOXIN. [Concomitant]
     Active Substance: DIGOXIN
     Dosage: 0.04 MG, QD
     Dates: start: 20180302, end: 20180429
  6. FUROSEMIDE. [Concomitant]
     Active Substance: FUROSEMIDE
     Dosage: 40 MG, QD
     Dates: start: 20180110, end: 20180120
  7. FUROSEMIDE. [Concomitant]
     Active Substance: FUROSEMIDE
     Dosage: 20 MG, QD
     Dates: start: 20180125, end: 20180228
  8. UPTRAVI [Suspect]
     Active Substance: SELEXIPAG
     Dosage: 0.6 MG, QD
     Route: 048
     Dates: start: 20180119, end: 20180315
  9. WARFARIN [Concomitant]
     Active Substance: WARFARIN
     Dosage: 1.75 MG, UNK
     Dates: end: 20180429
  10. FUROSEMIDE. [Concomitant]
     Active Substance: FUROSEMIDE
     Indication: PLEURAL EFFUSION
     Dosage: 10 MG, QD
     Dates: end: 20171215
  11. FUROSEMIDE. [Concomitant]
     Active Substance: FUROSEMIDE
     Dosage: 20 MG, QD
     Dates: start: 20180105, end: 20180109
  12. SPIRONOLACTONE. [Concomitant]
     Active Substance: SPIRONOLACTONE
     Indication: PLEURAL EFFUSION
     Dosage: 25 MG, QD
     Dates: end: 20180429
  13. AZOSEMIDE [Concomitant]
     Active Substance: AZOSEMIDE
     Indication: PLEURAL EFFUSION
     Dosage: 60 MG, QD
     Dates: start: 20180301, end: 20180314
  14. ALLOPURINOL. [Concomitant]
     Active Substance: ALLOPURINOL
     Indication: HYPERURICAEMIA
     Dosage: 100 MG, QD
     Dates: end: 20180429
  15. AZOSEMIDE [Concomitant]
     Active Substance: AZOSEMIDE
     Dosage: 30 MG, QD
     Dates: start: 20180315, end: 20180429
  16. UPTRAVI [Suspect]
     Active Substance: SELEXIPAG
     Indication: PULMONARY ARTERIAL HYPERTENSION
     Dosage: 0.2 MG, BID
     Route: 048
     Dates: start: 20180109, end: 20180118
  17. UPTRAVI [Suspect]
     Active Substance: SELEXIPAG
     Dosage: 0.4 MG, BID
     Route: 048
     Dates: start: 20180316, end: 20180429
  18. OPSUMIT [Concomitant]
     Active Substance: MACITENTAN
     Indication: PULMONARY ARTERIAL HYPERTENSION
     Dosage: 10 MG, UNK
     Dates: start: 20160602, end: 20180429

REACTIONS (5)
  - Oxygen saturation decreased [Fatal]
  - Sudden death [Fatal]
  - Infection [Unknown]
  - Chills [Unknown]
  - Pleural effusion [Recovering/Resolving]

NARRATIVE: CASE EVENT DATE: 20180301
